FAERS Safety Report 22653080 (Version 1)
Quarter: 2023Q2

REPORT INFORMATION
  Report Type: Spontaneous
  Country: IT (occurrence: IT)
  Receive Date: 20230629
  Receipt Date: 20230629
  Transmission Date: 20230722
  Serious: Yes (Other)
  Sender: FDA-Public Use
  Company Number: None

PATIENT
  Age: 70 Year
  Sex: Female
  Weight: 68 kg

DRUGS (1)
  1. FREMANEZUMAB [Suspect]
     Active Substance: FREMANEZUMAB
     Indication: Migraine
     Dosage: 1 FL SUBCUTANEOUS MONTHLY
     Route: 058
     Dates: start: 20201029, end: 20230516

REACTIONS (2)
  - Pulmonary embolism [Recovered/Resolved with Sequelae]
  - Superficial vein thrombosis [Recovered/Resolved with Sequelae]

NARRATIVE: CASE EVENT DATE: 20230515
